FAERS Safety Report 10189742 (Version 2)
Quarter: 2015Q2

REPORT INFORMATION
  Report Type: Spontaneous
  Country: US (occurrence: US)
  Receive Date: 20140522
  Receipt Date: 20150604
  Transmission Date: 20150821
  Serious: Yes (Hospitalization)
  Sender: FDA-Public Use
  Company Number: US-SA-2014SA043175

PATIENT
  Age: 38 Year
  Sex: Female

DRUGS (2)
  1. SOLOSTAR [Suspect]
     Active Substance: DEVICE
     Indication: DEVICE THERAPY
     Dates: start: 2009
  2. LANTUS SOLOSTAR [Suspect]
     Active Substance: INSULIN GLARGINE
     Indication: TYPE 1 DIABETES MELLITUS
     Dosage: DOSE:20 UNIT(S)
     Route: 065
     Dates: start: 2009

REACTIONS (1)
  - Blood glucose increased [Recovered/Resolved]

NARRATIVE: CASE EVENT DATE: 2014
